FAERS Safety Report 15173180 (Version 1)
Quarter: 2018Q3

REPORT INFORMATION
  Report Type: Spontaneous
  Country: DE (occurrence: DE)
  Receive Date: 20180720
  Receipt Date: 20180720
  Transmission Date: 20181010
  Serious: Yes (Hospitalization)
  Sender: FDA-Public Use
  Company Number: PHHY2014DE185184

PATIENT
  Age: 58 Year
  Sex: Female
  Weight: 50 kg

DRUGS (13)
  1. ENALAPRIL COMP [Concomitant]
     Active Substance: ENALAPRIL MALEATE\HYDROCHLOROTHIAZIDE
     Indication: HYPERTENSION
     Dosage: 35 MG, UNK
     Route: 048
  2. CARBOPLATIN. [Suspect]
     Active Substance: CARBOPLATIN
     Dosage: 578.65 MG, Q3W
     Route: 042
     Dates: start: 20140310
  3. PACLITAXEL. [Suspect]
     Active Substance: PACLITAXEL
     Dosage: 259 MG, Q3W
     Route: 042
     Dates: start: 20140325
  4. EUTHYROX [Concomitant]
     Active Substance: LEVOTHYROXINE SODIUM
     Indication: HYPOTHYROIDISM
     Dosage: 100 UG, UNK (DAYS)
     Route: 048
  5. CARBOPLATIN. [Suspect]
     Active Substance: CARBOPLATIN
     Indication: OVARIAN CANCER
     Dosage: 579 MG, Q3W
     Route: 042
     Dates: start: 20140225
  6. CARBOPLATIN. [Suspect]
     Active Substance: CARBOPLATIN
     Dosage: 578.65 MG, Q3W
     Route: 042
     Dates: start: 20140325
  7. BEVACIZUMAB. [Suspect]
     Active Substance: BEVACIZUMAB
     Dosage: 750 MG, Q3W
     Route: 042
     Dates: start: 20140415, end: 20150113
  8. HYDROCHLOROTHIAZIDE. [Concomitant]
     Active Substance: HYDROCHLOROTHIAZIDE
     Indication: HYPERTENSION
     Dosage: 12.5 MG, UNK
     Route: 048
  9. BEVACIZUMAB. [Suspect]
     Active Substance: BEVACIZUMAB
     Indication: OVARIAN CANCER
     Dosage: 750 MG, Q3W
     Route: 042
     Dates: start: 20140331
  10. PACLITAXEL. [Suspect]
     Active Substance: PACLITAXEL
     Dosage: 259 MG, Q3W
     Route: 042
     Dates: start: 20140310
  11. ENALAPRIL [Concomitant]
     Active Substance: ENALAPRIL
     Indication: HYPERTENSION
     Dosage: 10 MG, UNK
     Route: 048
  12. PACLITAXEL. [Suspect]
     Active Substance: PACLITAXEL
     Indication: OVARIAN CANCER
     Dosage: 259 MG, Q3W
     Route: 042
     Dates: start: 20140225
  13. SIMVASTATIN. [Concomitant]
     Active Substance: SIMVASTATIN
     Indication: HYPERCHOLESTEROLAEMIA
     Dosage: 10 MG, UNK (DAYS)
     Route: 048

REACTIONS (2)
  - Ascites [Recovered/Resolved]
  - Platelet count abnormal [Unknown]

NARRATIVE: CASE EVENT DATE: 20140306
